FAERS Safety Report 9055868 (Version 1)
Quarter: 2013Q1

REPORT INFORMATION
  Report Type: Spontaneous
  Country: None (occurrence: US)
  Receive Date: 20130206
  Receipt Date: 20130206
  Transmission Date: 20140127
  Serious: No
  Sender: FDA-Public Use
  Company Number: US-ALLERGAN-1202447US

PATIENT
  Sex: Male

DRUGS (2)
  1. RESTASIS [Suspect]
     Indication: EYE DISCHARGE
     Dosage: UNK
     Route: 047
     Dates: start: 201110
  2. RESTASIS? [Suspect]
     Dosage: UNK
     Route: 047

REACTIONS (1)
  - Drug ineffective [Unknown]
